FAERS Safety Report 20494119 (Version 1)
Quarter: 2022Q1

REPORT INFORMATION
  Report Type: Report from Study
  Country: ZA (occurrence: ZA)
  Receive Date: 20220221
  Receipt Date: 20220221
  Transmission Date: 20220423
  Serious: Yes (Hospitalization)
  Sender: FDA-Public Use
  Company Number: ZA-ABBVIE-22K-143-4283057-00

PATIENT
  Age: 57 Year
  Sex: Female

DRUGS (2)
  1. HUMIRA [Suspect]
     Active Substance: ADALIMUMAB
     Indication: Sjogren^s syndrome
     Route: 058
     Dates: start: 20201116
  2. HUMIRA [Suspect]
     Active Substance: ADALIMUMAB
     Indication: Ulcerative keratitis

REACTIONS (5)
  - Fall [Recovering/Resolving]
  - Joint dislocation [Recovering/Resolving]
  - Ankle fracture [Recovering/Resolving]
  - Lower limb fracture [Recovering/Resolving]
  - Pain [Not Recovered/Not Resolved]

NARRATIVE: CASE EVENT DATE: 20220211
